FAERS Safety Report 6863004 (Version 2)
Quarter: 2013Q4

REPORT INFORMATION
  Report Type: Report from Study
  Country: GB (occurrence: GB)
  Receive Date: 20081222
  Receipt Date: 20131112
  Transmission Date: 20140711
  Serious: Yes (Hospitalization)
  Sender: FDA-Public Use
  Company Number: GB-BRISTOL-MYERS SQUIBB COMPANY-14446637

PATIENT
  Age: 72 Year
  Sex: Male

DRUGS (6)
  1. CETUXIMAB [Suspect]
     Indication: OESOPHAGEAL CARCINOMA
     Route: 042
     Dates: start: 20080730, end: 20080922
  2. CISPLATIN [Suspect]
     Indication: OESOPHAGEAL CARCINOMA
     Dosage: GIVEN  ON DAYS 1,22,43 AND 64.
     Route: 042
     Dates: start: 20080724
  3. CAPECITABINE [Suspect]
     Indication: OESOPHAGEAL CARCINOMA
     Dosage: GIVEN TWICE DAILY ON DAYS 1-84.
     Route: 048
     Dates: start: 20080724
  4. SALBUTAMOL [Concomitant]
     Dosage: 1 DF: 2 PUFFS
  5. PARACETAMOL [Concomitant]
  6. DOMPERIDONE [Concomitant]
     Dates: start: 20080730

REACTIONS (1)
  - Thrombocytopenia [Recovered/Resolved]
